FAERS Safety Report 6723488-X (Version None)
Quarter: 2010Q2

REPORT INFORMATION
  Report Type: 
  Country: None (occurrence: None)
  Receive Date: 20100513
  Receipt Date: 20100510
  Transmission Date: 20101027
  Serious: Yes (Other)
  Sender: FDA-Public Use
  Company Number: US-BRISTOL-MYERS SQUIBB COMPANY-15099344

PATIENT
  Age: 63 Year
  Sex: Female

DRUGS (1)
  1. HYDREA [Suspect]
     Dates: start: 20100311, end: 20100325

REACTIONS (1)
  - THROMBOCYTOSIS [None]
